FAERS Safety Report 8136053-7 (Version None)
Quarter: 2012Q1

REPORT INFORMATION
  Report Type: 
  Country: None (occurrence: None)
  Receive Date: 20120209
  Receipt Date: 20120202
  Transmission Date: 20120608
  Serious: Yes (Hospitalization)
  Sender: FDA-Public Use
  Company Number: 2011SP057423

PATIENT
  Age: 57 Year
  Sex: Female
  Weight: 70.4 kg

DRUGS (49)
  1. REBETOL [Suspect]
     Indication: HEPATITIS C
     Dosage: SEE IMAGE
     Dates: start: 20110921, end: 20111005
  2. REBETOL [Suspect]
     Indication: HEPATITIS C
     Dosage: SEE IMAGE
     Dates: start: 20111117, end: 20111123
  3. REBETOL [Suspect]
     Indication: HEPATITIS C
     Dosage: SEE IMAGE
     Dates: start: 20111129, end: 20111214
  4. REBETOL [Suspect]
     Indication: HEPATITIS C
     Dosage: SEE IMAGE
     Dates: start: 20111129, end: 20111214
  5. REBETOL [Suspect]
     Indication: HEPATITIS C
     Dosage: SEE IMAGE
     Dates: start: 20111215, end: 20120111
  6. REBETOL [Suspect]
     Indication: HEPATITIS C
     Dosage: SEE IMAGE
     Dates: start: 20111220, end: 20120103
  7. REBETOL [Suspect]
     Indication: HEPATITIS C
     Dosage: SEE IMAGE
     Dates: start: 20110920, end: 20111019
  8. REBETOL [Suspect]
     Indication: HEPATITIS C
     Dosage: SEE IMAGE
     Dates: start: 20111117, end: 20111122
  9. REBETOL [Suspect]
     Indication: HEPATITIS C
     Dosage: SEE IMAGE
     Dates: start: 20111020, end: 20111116
  10. REBETOL [Suspect]
     Indication: HEPATITIS C
     Dosage: SEE IMAGE
     Dates: start: 20111007, end: 20111116
  11. REBETOL [Suspect]
     Indication: HEPATITIS C
     Dosage: SEE IMAGE
     Dates: start: 20111124, end: 20111128
  12. REBETOL [Suspect]
     Indication: HEPATITIS C
     Dosage: SEE IMAGE
     Dates: start: 20120104, end: 20120110
  13. REBETOL [Suspect]
     Indication: HEPATITIS C
     Dosage: SEE IMAGE
     Dates: start: 20111123, end: 20111128
  14. REBETOL [Suspect]
     Indication: HEPATITIS C
     Dosage: SEE IMAGE
     Dates: start: 20111215, end: 20111219
  15. REBETOL [Suspect]
     Indication: HEPATITIS C
     Dosage: SEE IMAGE
     Dates: start: 20111006, end: 20111007
  16. LORATADINE [Concomitant]
  17. LYSINE [Concomitant]
  18. WELLBUTRIN [Concomitant]
  19. VALTREX [Concomitant]
  20. IBUPROFEN [Concomitant]
  21. PEG-INTRON [Suspect]
     Indication: HEPATITIS C
     Dosage: 0.4 ML;QW;SC
     Route: 058
     Dates: start: 20111114, end: 20111114
  22. PEG-INTRON [Suspect]
     Indication: HEPATITIS C
     Dosage: 0.4 ML;QW;SC
     Route: 058
     Dates: start: 20111121, end: 20111121
  23. PEG-INTRON [Suspect]
     Indication: HEPATITIS C
     Dosage: 0.4 ML;QW;SC
     Route: 058
     Dates: start: 20111003, end: 20111003
  24. PEG-INTRON [Suspect]
     Indication: HEPATITIS C
     Dosage: 0.4 ML;QW;SC
     Route: 058
     Dates: start: 20111024, end: 20111024
  25. PEG-INTRON [Suspect]
     Indication: HEPATITIS C
     Dosage: 0.4 ML;QW;SC
     Route: 058
     Dates: start: 20111226, end: 20111226
  26. PEG-INTRON [Suspect]
     Indication: HEPATITIS C
     Dosage: 0.4 ML;QW;SC
     Route: 058
     Dates: start: 20111107, end: 20111107
  27. PEG-INTRON [Suspect]
     Indication: HEPATITIS C
     Dosage: 0.4 ML;QW;SC
     Route: 058
     Dates: start: 20111212, end: 20111212
  28. PEG-INTRON [Suspect]
     Indication: HEPATITIS C
     Dosage: 0.4 ML;QW;SC
     Route: 058
     Dates: start: 20110926, end: 20110926
  29. PEG-INTRON [Suspect]
     Indication: HEPATITIS C
     Dosage: 0.4 ML;QW;SC
     Route: 058
     Dates: start: 20111205, end: 20111205
  30. PEG-INTRON [Suspect]
     Indication: HEPATITIS C
     Dosage: 0.4 ML;QW;SC
     Route: 058
     Dates: start: 20110920, end: 20110920
  31. PEG-INTRON [Suspect]
     Indication: HEPATITIS C
     Dosage: 0.4 ML;QW;SC
     Route: 058
     Dates: start: 20111010, end: 20111010
  32. PEG-INTRON [Suspect]
     Indication: HEPATITIS C
     Dosage: 0.4 ML;QW;SC
     Route: 058
     Dates: start: 20111031, end: 20111031
  33. PEG-INTRON [Suspect]
     Indication: HEPATITIS C
     Dosage: 0.4 ML;QW;SC
     Route: 058
     Dates: start: 20111219, end: 20111219
  34. PEG-INTRON [Suspect]
     Indication: HEPATITIS C
     Dosage: 0.4 ML;QW;SC
     Route: 058
     Dates: start: 20120102, end: 20120102
  35. PEG-INTRON [Suspect]
     Indication: HEPATITIS C
     Dosage: 0.4 ML;QW;SC
     Route: 058
     Dates: start: 20111017, end: 20111017
  36. PEG-INTRON [Suspect]
     Indication: HEPATITIS C
     Dosage: 0.4 ML;QW;SC
     Route: 058
     Dates: start: 20111129, end: 20111129
  37. PEG-INTRON [Suspect]
     Indication: HEPATITIS C
     Dosage: 0.4 ML;QW;SC
     Route: 058
     Dates: start: 20120108, end: 20120108
  38. EFFEXOR [Concomitant]
  39. DEPLIN [Concomitant]
  40. PLACEBO [Suspect]
     Indication: HEPATITIS C
     Dosage: DF;TID;PO  DF;UNK; UNK
     Route: 048
     Dates: start: 20111117, end: 20111123
  41. PLACEBO [Suspect]
     Indication: HEPATITIS C
     Dosage: DF;TID;PO  DF;UNK; UNK
     Route: 048
     Dates: start: 20111020, end: 20111116
  42. BLINDED MK-5172 [Suspect]
     Indication: HEPATITIS C
     Dosage: SEE IMAGE
     Dates: start: 20111117, end: 20111123
  43. BLINDED MK-5172 [Suspect]
     Indication: HEPATITIS C
     Dosage: SEE IMAGE
     Dates: start: 20111006, end: 20111007
  44. BLINDED MK-5172 [Suspect]
     Indication: HEPATITIS C
     Dosage: SEE IMAGE
     Dates: start: 20110920, end: 20110920
  45. BLINDED MK-5172 [Suspect]
     Indication: HEPATITIS C
     Dosage: SEE IMAGE
     Dates: start: 20110921, end: 20111019
  46. BLINDED MK-5172 [Suspect]
     Indication: HEPATITIS C
     Dosage: SEE IMAGE
     Dates: start: 20111020, end: 20111116
  47. BLINDED MK-5172 [Suspect]
     Indication: HEPATITIS C
     Dosage: SEE IMAGE
     Dates: start: 20110921, end: 20110922
  48. VITAMIN B COMPLEX CAP [Concomitant]
  49. OMEPRAZOLE [Concomitant]

REACTIONS (4)
  - TREMOR [None]
  - VOMITING [None]
  - ASTHENIA [None]
  - DEHYDRATION [None]
